FAERS Safety Report 5525649-4 (Version None)
Quarter: 2007Q4

REPORT INFORMATION
  Report Type: 
  Country: None (occurrence: None)
  Receive Date: 20071120
  Receipt Date: 20071120
  Transmission Date: 20080405
  Serious: Yes (Other)
  Sender: FDA-Public Use
  Company Number: None

PATIENT
  Age: 51 Year
  Sex: Male
  Weight: 86.1834 kg

DRUGS (2)
  1. CLINDAMYCIN HCL [Suspect]
     Indication: ENDODONTIC PROCEDURE
     Dosage: TWO CAPSULES  TID  PO
     Route: 048
     Dates: start: 20071116, end: 20071119
  2. CLINDAMYCIN HCL [Suspect]
     Indication: TOOTH ABSCESS
     Dosage: TWO CAPSULES  TID  PO
     Route: 048
     Dates: start: 20071116, end: 20071119

REACTIONS (6)
  - ABDOMINAL DISTENSION [None]
  - CHILLS [None]
  - FLATULENCE [None]
  - FREQUENT BOWEL MOVEMENTS [None]
  - HAEMATOCHEZIA [None]
  - NAUSEA [None]
